FAERS Safety Report 9970059 (Version 2)
Quarter: 2014Q1

REPORT INFORMATION
  Report Type: Spontaneous
  Country: DE (occurrence: DE)
  Receive Date: 20140306
  Receipt Date: 20140328
  Transmission Date: 20141002
  Serious: Yes (Other)
  Sender: FDA-Public Use
  Company Number: DE-TEVA-462351GER

PATIENT
  Age: 44 Year
  Sex: Female
  Weight: 70.1 kg

DRUGS (4)
  1. LONQUEX [Suspect]
     Dates: start: 20140117, end: 20140117
  2. LONQUEX [Suspect]
     Dates: start: 20140131, end: 20140131
  3. PACLITAXEL [Concomitant]
     Indication: BREAST CANCER
     Dates: start: 20140116, end: 20140116
  4. PACLITAXEL [Concomitant]
     Dates: start: 20140130, end: 20140130

REACTIONS (2)
  - Leukocytosis [Recovered/Resolved]
  - Neutrophil count decreased [Unknown]
